FAERS Safety Report 6243533-8 (Version None)
Quarter: 2009Q2

REPORT INFORMATION
  Report Type: 
  Country: None (occurrence: None)
  Receive Date: 20090624
  Receipt Date: 20090619
  Transmission Date: 20091009
  Serious: Yes (Death, Other)
  Sender: FDA-Public Use
  Company Number: PHHO2007MX10302

PATIENT
  Sex: Female

DRUGS (12)
  1. NEORAL [Suspect]
     Indication: RENAL TRANSPLANT
     Dosage: 50 MG, BID
     Route: 048
     Dates: start: 20050111
  2. MYCOPHENOLATE MOFETIL [Concomitant]
  3. PREDNISONE [Concomitant]
  4. CALCIUM CARBONATE [Concomitant]
  5. GLIBENCLAMIDE [Concomitant]
  6. INSULIN [Concomitant]
  7. METFORMIN [Concomitant]
  8. METOPROLOL SUCCINATE [Concomitant]
  9. NIFEDIPINE [Concomitant]
  10. PRAVASTATIN [Concomitant]
  11. RANITIDINE [Concomitant]
  12. TRIMETHOPRIM [Concomitant]

REACTIONS (3)
  - COUGH [None]
  - DEATH [None]
  - HYPERGLYCAEMIA [None]
